FAERS Safety Report 5402772-6 (Version None)
Quarter: 2007Q3

REPORT INFORMATION
  Report Type: 
  Country: None (occurrence: None)
  Receive Date: 20070801
  Receipt Date: 20070723
  Transmission Date: 20080115
  Serious: Yes (Other)
  Sender: FDA-Public Use
  Company Number: US-GENENTECH-245099

PATIENT
  Age: 55 Year

DRUGS (2)
  1. AVASTIN [Suspect]
     Indication: NON-SMALL CELL LUNG CANCER
  2. TARCEVA [Suspect]
     Indication: NON-SMALL CELL LUNG CANCER

REACTIONS (1)
  - RENAL FAILURE ACUTE [None]
